FAERS Safety Report 7294685-2 (Version None)
Quarter: 2011Q1

REPORT INFORMATION
  Report Type: 
  Country: None (occurrence: None)
  Receive Date: 20110207
  Receipt Date: 20110125
  Transmission Date: 20110831
  Serious: Yes (Death, Other)
  Sender: FDA-Public Use
  Company Number: KADN20110015

PATIENT
  Sex: Male

DRUGS (5)
  1. MARIJUANA [Suspect]
     Dosage: INGESTION
     Dates: end: 20090101
  2. MORPHINE [Suspect]
     Indication: PRODUCT USED FOR UNKNOWN INDICATION
     Dosage: INGESTION
     Dates: end: 20090101
  3. CODEINE [Suspect]
     Indication: PRODUCT USED FOR UNKNOWN INDICATION
     Dosage: INGESTION
     Dates: end: 20090101
  4. COCAINE [Suspect]
     Dosage: INGESTION
     Dates: end: 20090101
  5. ETHANOL [Suspect]
     Dosage: PER ORAL
     Route: 048
     Dates: end: 20090101

REACTIONS (3)
  - PULMONARY OEDEMA [None]
  - DRUG ABUSE [None]
  - BRAIN OEDEMA [None]
